FAERS Safety Report 4634457-8 (Version None)
Quarter: 2005Q2

REPORT INFORMATION
  Report Type: 
  Country: None (occurrence: None)
  Receive Date: 20050412
  Receipt Date: 20050329
  Transmission Date: 20051028
  Serious: Yes (Death)
  Sender: FDA-Public Use
  Company Number: 2005BI002665

PATIENT
  Age: 88 Year
  Sex: Female

DRUGS (2)
  1. AMEVIVE [Suspect]
     Indication: PSORIASIS
     Dosage: IM
     Route: 030
     Dates: start: 20040301, end: 20041109
  2. PSORIASIS OINTMENTS [Concomitant]

REACTIONS (1)
  - MYOCARDIAL INFARCTION [None]
